FAERS Safety Report 14381992 (Version 5)
Quarter: 2018Q3

REPORT INFORMATION
  Report Type: Spontaneous
  Country: US (occurrence: US)
  Receive Date: 20180112
  Receipt Date: 20180723
  Transmission Date: 20181010
  Serious: Yes (Hospitalization, Other)
  Sender: FDA-Public Use
  Company Number: US-PFIZER INC-2018007139

PATIENT
  Age: 83 Year
  Sex: Male

DRUGS (14)
  1. DEXAMETHASONE. [Concomitant]
     Active Substance: DEXAMETHASONE
     Indication: PREMEDICATION
     Dosage: UNK
  2. 5 FU [Concomitant]
     Active Substance: FLUOROURACIL
     Indication: METASTASES TO LIVER
     Dosage: UNK, CYCLIC (RESUMED FOR 10 ADDITIONAL CYCLES)
  3. CAPECITABINE. [Concomitant]
     Active Substance: CAPECITABINE
     Indication: METASTASES TO LIVER
  4. CALCIUM FOLINATE [Interacting]
     Active Substance: LEUCOVORIN CALCIUM
     Indication: RECTAL CANCER STAGE IV
     Dosage: UNK, CYCLIC (EIGHT CYCLES)
  5. 5 FU [Concomitant]
     Active Substance: FLUOROURACIL
     Indication: RECTAL CANCER STAGE IV
     Dosage: UNK, CYCLIC (EIGHT CYCLES)
  6. BEVACIZUMAB. [Concomitant]
     Active Substance: BEVACIZUMAB
     Indication: METASTASES TO LIVER
     Dosage: UNK, CYCLIC (RESUMED FOR 10 ADDITIONAL CYCLES)
  7. CALCIUM FOLINATE [Interacting]
     Active Substance: LEUCOVORIN CALCIUM
     Indication: METASTASES TO LIVER
     Dosage: UNK, CYCLIC (RESUMED FOR 10 ADDITIONAL CYCLES)
  8. BEVACIZUMAB. [Concomitant]
     Active Substance: BEVACIZUMAB
     Indication: RECTAL CANCER STAGE IV
     Dosage: UNK, CYCLIC (EIGHT CYCLES)
  9. PEGFILGRASTIM [Concomitant]
     Active Substance: PEGFILGRASTIM
     Indication: NEUTROPENIA
     Dosage: UNK
  10. OXALIPLATIN. [Suspect]
     Active Substance: OXALIPLATIN
     Indication: RECTAL CANCER STAGE IV
     Dosage: UNK, CYCLIC (EIGHT CYCLES)
  11. OXALIPLATIN. [Interacting]
     Active Substance: OXALIPLATIN
     Indication: METASTASES TO LIVER
     Dosage: UNK (RESUMED FOR 10 ADDITIONAL CYCLES)
  12. PALONOSETRON. [Interacting]
     Active Substance: PALONOSETRON HYDROCHLORIDE
     Indication: PREMEDICATION
     Dosage: UNK
  13. DEXAMETHASONE. [Concomitant]
     Active Substance: DEXAMETHASONE
     Dosage: 40 MG, UNK
  14. CAPECITABINE. [Concomitant]
     Active Substance: CAPECITABINE
     Indication: RECTAL CANCER STAGE IV
     Dosage: UNK

REACTIONS (7)
  - Immune thrombocytopenic purpura [Recovering/Resolving]
  - Thrombotic microangiopathy [Recovering/Resolving]
  - Drug specific antibody present [Recovering/Resolving]
  - Thrombocytopenia [Recovering/Resolving]
  - Drug interaction [Recovering/Resolving]
  - Acute kidney injury [Recovering/Resolving]
  - Microangiopathic haemolytic anaemia [Recovering/Resolving]
